FAERS Safety Report 14264328 (Version 1)
Quarter: 2017Q4

REPORT INFORMATION
  Report Type: Spontaneous
  Country: US (occurrence: US)
  Receive Date: 20171208
  Receipt Date: 20171208
  Transmission Date: 20180321
  Serious: No
  Sender: FDA-Public Use
  Company Number: US-JAZZ-2017-US-011514

PATIENT
  Sex: Female

DRUGS (9)
  1. PROZAC [Concomitant]
     Active Substance: FLUOXETINE HYDROCHLORIDE
  2. TOPAMAX [Concomitant]
     Active Substance: TOPIRAMATE
  3. UNISOM SLEEP [Concomitant]
     Active Substance: DOXYLAMINE SUCCINATE
  4. XYREM [Suspect]
     Active Substance: SODIUM OXYBATE
     Dosage: 4G, QD FIRST DOSE
     Route: 048
     Dates: start: 201708
  5. XYREM [Suspect]
     Active Substance: SODIUM OXYBATE
     Dosage: 3.5G, QD SECOND DOSE
     Route: 048
     Dates: start: 201708
  6. XYREM [Suspect]
     Active Substance: SODIUM OXYBATE
     Dosage: 3.5G
     Route: 048
     Dates: start: 201705, end: 201708
  7. XYREM [Suspect]
     Active Substance: SODIUM OXYBATE
     Indication: NARCOLEPSY
     Dosage: 1.5G, BID
     Route: 048
     Dates: start: 201603, end: 201604
  8. XYREM [Suspect]
     Active Substance: SODIUM OXYBATE
     Dosage: DOSE ADJUSTMENT
     Route: 048
     Dates: start: 201604, end: 201705
  9. ADDERALL [Concomitant]
     Active Substance: AMPHETAMINE ASPARTATE\AMPHETAMINE SULFATE\DEXTROAMPHETAMINE SACCHARATE\DEXTROAMPHETAMINE SULFATE

REACTIONS (1)
  - Insomnia [Not Recovered/Not Resolved]
